FAERS Safety Report 14793469 (Version 2)
Quarter: 2018Q2

REPORT INFORMATION
  Report Type: Spontaneous
  Country: TR (occurrence: TR)
  Receive Date: 20180423
  Receipt Date: 20180608
  Transmission Date: 20180711
  Serious: Yes (Other)
  Sender: FDA-Public Use
  Company Number: TR-LPDUSPRD-20180263

PATIENT
  Age: 39 Year
  Sex: Female
  Weight: 75 kg

DRUGS (5)
  1. LEVOTIRON [Concomitant]
     Active Substance: LEVOTHYROXINE SODIUM
     Dosage: 100 MG
     Route: 065
  2. INH [Concomitant]
     Active Substance: ISONIAZID
     Dosage: UNKNOWN
     Route: 065
  3. BRUFEN RETARD [Concomitant]
     Active Substance: IBUPROFEN
     Dosage: UNKNOWN
     Route: 065
  4. FERINJECT [Suspect]
     Active Substance: FERRIC CARBOXYMALTOSE
     Dosage: 500 MG, SECOND DOSE
     Route: 042
     Dates: start: 20180110, end: 20180110
  5. HUMIRA [Concomitant]
     Active Substance: ADALIMUMAB
     Dosage: UNKNOWN
     Route: 065

REACTIONS (4)
  - Back pain [Unknown]
  - Palpitations [Recovered/Resolved]
  - Dyspnoea [Unknown]
  - Chest pain [Unknown]

NARRATIVE: CASE EVENT DATE: 20180110
